FAERS Safety Report 22710081 (Version 18)
Quarter: 2024Q1

REPORT INFORMATION
  Report Type: Spontaneous
  Country: CA (occurrence: CA)
  Receive Date: 20230717
  Receipt Date: 20240209
  Transmission Date: 20240410
  Serious: Yes (Other)
  Sender: FDA-Public Use
  Company Number: CA-CELLTRION INC.-2023CA014176

PATIENT

DRUGS (22)
  1. INFLECTRA [Suspect]
     Active Substance: INFLIXIMAB-DYYB
     Indication: Colitis ulcerative
     Dosage: 5 MG/KG, AT 0, 2, 6 WEEKS THEN EVERY 8 WEEKS
     Route: 042
     Dates: start: 20230707
  2. INFLECTRA [Suspect]
     Active Substance: INFLIXIMAB-DYYB
     Dosage: 370 MG, AFTER 2 WEEKS
     Route: 042
     Dates: start: 20230720
  3. INFLECTRA [Suspect]
     Active Substance: INFLIXIMAB-DYYB
     Dosage: 365 MG (5 MG/KG), AFTER 4 WEEKS (WEEK 6 INDUCTION)
     Route: 042
     Dates: start: 20230817
  4. INFLECTRA [Suspect]
     Active Substance: INFLIXIMAB-DYYB
     Dosage: 375 MG AFTER 7 WEEKS AND 6 DAYS (PRESCRIBED EVERY 8 WEEKS)
     Route: 042
     Dates: start: 20231011
  5. INFLECTRA [Suspect]
     Active Substance: INFLIXIMAB-DYYB
     Dosage: 5 MG/KG AFTER 7 WEEKS AND 6 DAYS (PRESCRIBED EVERY 8 WEEKS)
     Route: 042
     Dates: start: 20231011
  6. INFLECTRA [Suspect]
     Active Substance: INFLIXIMAB-DYYB
     Dosage: 365 MG (5 MG/KG), EVERY 8 WEEKS
     Route: 042
     Dates: start: 20231206
  7. INFLECTRA [Suspect]
     Active Substance: INFLIXIMAB-DYYB
     Dosage: 365 MG (5MG/KG), EVERY 8 WEEKS
     Route: 042
     Dates: start: 20240131
  8. DESONIDE [Concomitant]
     Active Substance: DESONIDE
     Dosage: 1 DF, DOSAGE NOT AVAILABLE
     Route: 061
  9. ENTOCORT [Concomitant]
     Active Substance: BUDESONIDE
     Dosage: UNK
  10. MOMETASONE [Concomitant]
     Active Substance: MOMETASONE
     Dosage: 1 DF, DOSAGE NOT AVAILABLE
     Route: 061
  11. PANTOPRAZOLE [Concomitant]
     Active Substance: PANTOPRAZOLE
     Dosage: 40 MG, AS NEEDED
     Route: 065
  12. PREDNISONE [Concomitant]
     Active Substance: PREDNISONE
     Dosage: 15 MG, 1X/DAY
     Dates: start: 20230426
  13. PREDNISONE [Concomitant]
     Active Substance: PREDNISONE
     Dosage: 10 MG
     Dates: end: 20230817
  14. PREDNISONE [Concomitant]
     Active Substance: PREDNISONE
     Dosage: 5 MG
     Dates: start: 20230817, end: 20230819
  15. ROSUVASTATIN [Concomitant]
     Active Substance: ROSUVASTATIN
     Dosage: 10 MG, 1X/DAY
     Route: 065
  16. FLUOCINONIDE [Concomitant]
     Active Substance: FLUOCINONIDE
     Dosage: 1 DF (5% LCD), DOSAGE NOT AVAILABLE
     Route: 061
  17. TOPICORT [Concomitant]
     Active Substance: DESOXIMETASONE
     Dosage: 1 DF, DOSAGE NOT AVAILABLE
     Route: 061
  18. VITAMIN B12 [Concomitant]
     Active Substance: CYANOCOBALAMIN
     Dosage: 1250 UG
     Route: 065
  19. VITAMIN D3 [Concomitant]
     Active Substance: CHOLECALCIFEROL
     Dosage: 4000 IU, 1X/DAY
     Route: 065
  20. VITAMIN D3 K2 [Concomitant]
     Dosage: 1 DF, DOSAGE NOT AVAILABLE
     Route: 065
  21. VITAMIN E [Concomitant]
     Active Substance: .ALPHA.-TOCOPHEROL
     Dosage: 1 DF, DOSAGE NOT AVAILABLE
     Route: 065
  22. VITAMIN K [Concomitant]
     Active Substance: PHYTONADIONE
     Dosage: 250 UG
     Route: 065

REACTIONS (18)
  - Condition aggravated [Recovered/Resolved]
  - Palpitations [Unknown]
  - Therapy partial responder [Unknown]
  - Drug ineffective [Unknown]
  - Therapeutic response shortened [Unknown]
  - Poor venous access [Unknown]
  - Blister [Not Recovered/Not Resolved]
  - Mental disorder [Unknown]
  - Proctitis [Recovered/Resolved]
  - Faecal calprotectin increased [Unknown]
  - Pain [Recovering/Resolving]
  - Dizziness [Unknown]
  - Food poisoning [Recovered/Resolved]
  - Rash macular [Not Recovered/Not Resolved]
  - Rash pruritic [Not Recovered/Not Resolved]
  - Psoriasis [Not Recovered/Not Resolved]
  - Sleep disorder [Recovering/Resolving]
  - Enzyme abnormality [Not Recovered/Not Resolved]

NARRATIVE: CASE EVENT DATE: 20230101
